FAERS Safety Report 5257489-8 (Version None)
Quarter: 2007Q1

REPORT INFORMATION
  Report Type: 
  Country: None (occurrence: None)
  Receive Date: 20070307
  Receipt Date: 20060821
  Transmission Date: 20070707
  Serious: No
  Sender: FDA-Public Use
  Company Number: US-GLAXOSMITHKLINE-A0617486A

PATIENT
  Age: 55 Year
  Sex: Female

DRUGS (9)
  1. REQUIP [Suspect]
     Indication: RESTLESS LEGS SYNDROME
     Route: 048
     Dates: start: 20051201
  2. AVANDIA [Concomitant]
  3. HUMALOG [Concomitant]
  4. ZAROXOLYN [Concomitant]
  5. ZOLOFT [Concomitant]
  6. UNKNOWN MEDICATION [Concomitant]
  7. NEXIUM [Concomitant]
  8. ROBAXIN [Concomitant]
  9. NEURONTIN [Concomitant]

REACTIONS (2)
  - ALOPECIA [None]
  - PRURITUS [None]
